FAERS Safety Report 11528745 (Version 1)
Quarter: 2015Q3

REPORT INFORMATION
  Report Type: Spontaneous
  Country: US (occurrence: US)
  Receive Date: 20150921
  Receipt Date: 20150921
  Transmission Date: 20151125
  Serious: Yes (Hospitalization, Other)
  Sender: FDA-Public Use
  Company Number: US-AUROBINDO-AUR-APL-2015-07633

PATIENT
  Age: 19 Year
  Sex: Female

DRUGS (4)
  1. DIVALPROEX [Suspect]
     Active Substance: DIVALPROEX SODIUM
     Indication: AGGRESSION
     Dosage: 500MG IN THE MORNING AND 750MG AT BEDTIME
     Route: 065
  2. DIVALPROEX [Suspect]
     Active Substance: DIVALPROEX SODIUM
     Indication: IRRITABILITY
  3. TOPIRAMATE. [Suspect]
     Active Substance: TOPIRAMATE
     Indication: PSYCHIATRIC SYMPTOM
     Dosage: 100MG IN THE MORNING AND 200MG IN THE EVENING
     Route: 065
  4. GABAPENTIN. [Concomitant]
     Active Substance: GABAPENTIN
     Indication: PSYCHIATRIC SYMPTOM
     Dosage: 800 MG, 3 TIMES A DAY
     Route: 065

REACTIONS (10)
  - Irritability [Recovered/Resolved]
  - Affect lability [Recovered/Resolved]
  - Drug level increased [Recovered/Resolved]
  - Hyperammonaemia [Recovered/Resolved]
  - Balance disorder [Recovered/Resolved]
  - Anger [Recovered/Resolved]
  - Drug withdrawal syndrome [Recovered/Resolved]
  - Lethargy [Recovered/Resolved]
  - White blood cell count decreased [Recovered/Resolved]
  - Aggression [Recovered/Resolved]
